FAERS Safety Report 7897692-1 (Version None)
Quarter: 2011Q4

REPORT INFORMATION
  Report Type: 
  Country: None (occurrence: None)
  Receive Date: 20111107
  Receipt Date: 20111027
  Transmission Date: 20120403
  Serious: Yes (Death)
  Sender: FDA-Public Use
  Company Number: PT-BAXTER-2011BH030398

PATIENT
  Age: 46 Year
  Sex: Female

DRUGS (10)
  1. EXTRANEAL [Suspect]
     Indication: KIDNEY TRANSPLANT REJECTION
     Route: 033
     Dates: end: 20110923
  2. PHYSIOSOL IN PLASTIC CONTAINER [Suspect]
     Route: 033
     Dates: end: 20110923
  3. PHYSIOSOL IN PLASTIC CONTAINER [Suspect]
     Route: 033
     Dates: end: 20110923
  4. PHYSIOSOL IN PLASTIC CONTAINER [Suspect]
     Indication: PERITONEAL DIALYSIS
     Route: 033
     Dates: end: 20110923
  5. PHYSIOSOL IN PLASTIC CONTAINER [Suspect]
     Indication: KIDNEY TRANSPLANT REJECTION
     Route: 033
     Dates: end: 20110923
  6. EXTRANEAL [Suspect]
     Indication: PERITONEAL DIALYSIS
     Route: 033
     Dates: end: 20110923
  7. EXTRANEAL [Suspect]
     Indication: VASCULAR ACCESS COMPLICATION
     Route: 033
     Dates: end: 20110923
  8. PHYSIOSOL IN PLASTIC CONTAINER [Suspect]
     Route: 033
     Dates: end: 20110923
  9. PS PRODUCT NOT LISTED [Concomitant]
     Indication: DIABETES MELLITUS MANAGEMENT
     Route: 048
  10. PHYSIOSOL IN PLASTIC CONTAINER [Suspect]
     Indication: VASCULAR ACCESS COMPLICATION
     Route: 033
     Dates: end: 20110923

REACTIONS (1)
  - ACUTE MYOCARDIAL INFARCTION [None]
